FAERS Safety Report 4719560-6 (Version None)
Quarter: 2005Q3

REPORT INFORMATION
  Report Type: 
  Country: None (occurrence: None)
  Receive Date: 20050719
  Receipt Date: 20050712
  Transmission Date: 20060218
  Serious: Yes (Hospitalization)
  Sender: FDA-Public Use
  Company Number: DEWYE786630JUN05

PATIENT
  Age: 45 Year
  Sex: Male

DRUGS (6)
  1. VENLAFAXINE HCL [Suspect]
     Dosage: 16 CAPSULES (OVERDOSE AMOUNT 1200 MG) ORAL
     Route: 048
     Dates: start: 20050629, end: 20050629
  2. ALCOHOL              (ETHANOL, , 0) [Suspect]
     Dosage: ORAL
     Route: 048
     Dates: start: 20050629, end: 20050629
  3. CAMPRAL [Suspect]
     Dosage: 50 TABLETS ORAL
     Route: 048
     Dates: start: 20050629, end: 20050629
  4. METHADONE       (METHADONE) [Suspect]
     Dosage: ORAL
     Route: 048
     Dates: start: 20050629, end: 20050629
  5. TRICYCLIC ANTIDEPRESSANTS             (TRICYCLIC ANTIDEPRESSANT) [Suspect]
     Dosage: ORAL
     Route: 048
     Dates: start: 20050629, end: 20050629
  6. BENZODIAZEPINE     (UNSPECIFIED) [Suspect]
     Dosage: ORAL
     Route: 048
     Dates: start: 20050629, end: 20050629

REACTIONS (6)
  - ALCOHOL WITHDRAWAL SYNDROME [None]
  - COMA [None]
  - DELIRIUM [None]
  - INTENTIONAL MISUSE [None]
  - OVERDOSE [None]
  - SALIVARY HYPERSECRETION [None]
